FAERS Safety Report 23448588 (Version 1)
Quarter: 2024Q1

REPORT INFORMATION
  Report Type: Spontaneous
  Country: US (occurrence: US)
  Receive Date: 20240127
  Receipt Date: 20240127
  Transmission Date: 20240410
  Serious: Yes (Other)
  Sender: FDA-Public Use
  Company Number: US-UCBSA-2024003319

PATIENT
  Age: 32 Year
  Sex: Female

DRUGS (2)
  1. CIMZIA [Suspect]
     Active Substance: CERTOLIZUMAB PEGOL
     Indication: Psoriasis
     Dosage: 400 MILLIGRAM, EV 4 WEEKS
     Dates: start: 202308, end: 202308
  2. CIMZIA [Suspect]
     Active Substance: CERTOLIZUMAB PEGOL
     Indication: Arthralgia
     Dosage: 400 MILLIGRAM, EV 4 WEEKS
     Dates: start: 202309, end: 202312

REACTIONS (9)
  - Abortion spontaneous [Unknown]
  - Rash erythematous [Not Recovered/Not Resolved]
  - COVID-19 [Unknown]
  - Alopecia [Unknown]
  - Pruritus [Unknown]
  - Maternal exposure during pregnancy [Unknown]
  - Maternal exposure before pregnancy [Unknown]
  - Product use in unapproved indication [Unknown]
  - Product use issue [Unknown]

NARRATIVE: CASE EVENT DATE: 20230101
